FAERS Safety Report 23276848 (Version 1)
Quarter: 2023Q4

REPORT INFORMATION
  Report Type: Spontaneous
  Country: US (occurrence: US)
  Receive Date: 20231208
  Receipt Date: 20231208
  Transmission Date: 20240110
  Serious: No
  Sender: FDA-Public Use
  Company Number: US-MYLANLABS-2023M1129610

PATIENT
  Age: 75 Year
  Sex: Female
  Weight: 70.31 kg

DRUGS (1)
  1. BREYNA [Suspect]
     Active Substance: BUDESONIDE\FORMOTEROL FUMARATE
     Indication: Asthma late onset
     Dosage: 2 DOSAGE FORM, BID (2 PUFFS IN THE MORNING AND 2 PUFFS AT NIGHT)
     Route: 065

REACTIONS (4)
  - Drug ineffective [Unknown]
  - Incorrect dose administered [Unknown]
  - Device defective [Unknown]
  - Device delivery system issue [Unknown]
